FAERS Safety Report 15777571 (Version 1)
Quarter: 2018Q4

REPORT INFORMATION
  Report Type: Spontaneous
  Country: US (occurrence: US)
  Receive Date: 20181231
  Receipt Date: 20181231
  Transmission Date: 20190205
  Serious: No
  Sender: FDA-Public Use
  Company Number: US-CLOVIS ONCOLOGY-CLO-2018-001622

PATIENT
  Sex: Female

DRUGS (1)
  1. RUBRACA [Suspect]
     Active Substance: RUCAPARIB CAMSYLATE
     Indication: OVARIAN CANCER
     Dosage: 600 MG, BID
     Route: 048
     Dates: start: 20180918, end: 2018

REACTIONS (5)
  - Memory impairment [Unknown]
  - Visual impairment [Unknown]
  - Asthenia [Unknown]
  - Chest pain [Unknown]
  - Vomiting [Unknown]

NARRATIVE: CASE EVENT DATE: 2018
